FAERS Safety Report 9343094 (Version 1)
Quarter: 2013Q2

REPORT INFORMATION
  Report Type: Spontaneous
  Country: GB (occurrence: GB)
  Receive Date: 20130611
  Receipt Date: 20130611
  Transmission Date: 20140414
  Serious: Yes (Life-Threatening)
  Sender: FDA-Public Use
  Company Number: PHHY2013GB058567

PATIENT
  Age: 65 Year
  Sex: Female

DRUGS (2)
  1. CLARITHROMYCIN [Suspect]
     Dosage: 250 MG, BID
     Route: 048
     Dates: start: 20130114, end: 20130311
  2. LEVOTHYROXINE [Concomitant]
     Dosage: 150 UG, UNK
     Route: 048
     Dates: start: 2008

REACTIONS (2)
  - Myocardial infarction [Recovering/Resolving]
  - Long QT syndrome [Recovering/Resolving]
